FAERS Safety Report 4991569-7 (Version None)
Quarter: 2006Q2

REPORT INFORMATION
  Report Type: 
  Country: None (occurrence: None)
  Receive Date: 20060502
  Receipt Date: 20060419
  Transmission Date: 20061013
  Serious: Yes (Hospitalization, Other)
  Sender: FDA-Public Use
  Company Number: PAR_0615_2006

PATIENT
  Age: 95 Year
  Sex: Female

DRUGS (3)
  1. ISOPTIN SR [Suspect]
     Dosage: DF PO
     Route: 048
     Dates: start: 20060216, end: 20060101
  2. DIGOXIN [Suspect]
     Dosage: DF
  3. MODURETIC 5-50 [Suspect]
     Dosage: DF PO
     Route: 048
     Dates: start: 20060216, end: 20060101

REACTIONS (5)
  - CARDIOACTIVE DRUG LEVEL INCREASED [None]
  - CONSTIPATION [None]
  - DIZZINESS [None]
  - HYPONATRAEMIA [None]
  - THERAPEUTIC AGENT TOXICITY [None]
